FAERS Safety Report 18461314 (Version 1)
Quarter: 2020Q4

REPORT INFORMATION
  Report Type: Spontaneous
  Country: US (occurrence: US)
  Receive Date: 20201104
  Receipt Date: 20201104
  Transmission Date: 20210114
  Serious: No
  Sender: FDA-Public Use
  Company Number: US-AUROBINDO-AUR-APL-2020-028389

PATIENT

DRUGS (4)
  1. ESZOPICLONE TABLET 3 MG USP [Suspect]
     Active Substance: ESZOPICLONE
     Dosage: 1 DOSAGE FORM
     Route: 065
     Dates: start: 20200618
  2. ESZOPICLONE TABLET 3 MG USP [Suspect]
     Active Substance: ESZOPICLONE
     Indication: PRODUCT USED FOR UNKNOWN INDICATION
     Dosage: 03 NIGHTS IN A ROW AND 02 TABLETS FOR NEXT DAY
     Route: 065
  3. ESZOPICLONE TABLET 3 MG USP [Suspect]
     Active Substance: ESZOPICLONE
     Dosage: 1 DOSAGE FORM
     Route: 065
     Dates: start: 20200617
  4. ESZOPICLONE TABLET 3 MG USP [Suspect]
     Active Substance: ESZOPICLONE
     Dosage: 1 DOSAGE FORM
     Route: 065
     Dates: start: 20200616

REACTIONS (2)
  - Stress [Unknown]
  - Drug ineffective [Unknown]
